FAERS Safety Report 7114697-9 (Version None)
Quarter: 2010Q4

REPORT INFORMATION
  Report Type: 
  Country: None (occurrence: None)
  Receive Date: 20101122
  Receipt Date: 20101110
  Transmission Date: 20110411
  Serious: Yes (Hospitalization)
  Sender: FDA-Public Use
  Company Number: BR-BIOGENIDEC-2010BI039863

PATIENT
  Age: 53 Year
  Sex: Female

DRUGS (4)
  1. AVONEX [Suspect]
     Indication: MULTIPLE SCLEROSIS
     Route: 030
     Dates: start: 20100628, end: 20100101
  2. AVONEX [Suspect]
     Route: 030
     Dates: start: 20100901
  3. LIORESAL [Concomitant]
     Indication: MUSCLE SPASTICITY
     Dates: start: 20101109
  4. GABAPENTIN [Concomitant]
     Indication: MULTIPLE SCLEROSIS

REACTIONS (6)
  - ABDOMINAL PAIN [None]
  - AUTOIMMUNE HEPATITIS [None]
  - CHOLELITHIASIS [None]
  - COMA [None]
  - GALLBLADDER ENLARGEMENT [None]
  - MULTIPLE SCLEROSIS RELAPSE [None]
